FAERS Safety Report 7341537-5 (Version None)
Quarter: 2011Q1

REPORT INFORMATION
  Report Type: 
  Country: None (occurrence: None)
  Receive Date: 20110309
  Receipt Date: 20110224
  Transmission Date: 20110831
  Serious: Yes (Other)
  Sender: FDA-Public Use
  Company Number: FR-BAYER-2010-008765

PATIENT
  Sex: Male
  Weight: 75 kg

DRUGS (1)
  1. PMOS STUDY OF SORAFENIB (BAY43-9006) IN PATIENTS WITH HCC [Suspect]
     Indication: HEPATIC NEOPLASM MALIGNANT
     Dosage: DAILY DOSE 800 MG
     Route: 048
     Dates: start: 20100327, end: 20100407

REACTIONS (3)
  - TOXIC EPIDERMAL NECROLYSIS [None]
  - SKIN LESION [None]
  - EPIDERMAL NECROSIS [None]
